FAERS Safety Report 19427373 (Version 1)
Quarter: 2021Q2

REPORT INFORMATION
  Report Type: Spontaneous
  Country: US (occurrence: US)
  Receive Date: 20210616
  Receipt Date: 20210616
  Transmission Date: 20210717
  Serious: Yes (Other)
  Sender: FDA-Public Use
  Company Number: US-ROCHE-2843102

PATIENT
  Sex: Female

DRUGS (11)
  1. FAMOTIDINE. [Concomitant]
     Active Substance: FAMOTIDINE
  2. FOLIC ACID. [Concomitant]
     Active Substance: FOLIC ACID
  3. METHOCARBAMOL. [Concomitant]
     Active Substance: METHOCARBAMOL
  4. ACTEMRA [Suspect]
     Active Substance: TOCILIZUMAB
     Indication: RHEUMATOID ARTHRITIS
     Dosage: 162MG/0.9ML
     Route: 058
     Dates: start: 20210601
  5. CENTRUM FOR WOMEN [Concomitant]
     Active Substance: VITAMINS
  6. MELOXICAM. [Concomitant]
     Active Substance: MELOXICAM
  7. VITAMIN D [ERGOCALCIFEROL] [Concomitant]
     Active Substance: ERGOCALCIFEROL
  8. LOSARTAN POTASSIUM. [Concomitant]
     Active Substance: LOSARTAN POTASSIUM
  9. VITAMIN C [Concomitant]
     Active Substance: ASCORBIC ACID
  10. ACTEMRA [Suspect]
     Active Substance: TOCILIZUMAB
  11. ALENDRONATE [Concomitant]
     Active Substance: ALENDRONATE SODIUM

REACTIONS (3)
  - Pain [Recovered/Resolved]
  - Musculoskeletal stiffness [Recovered/Resolved]
  - Hepatitis B [Unknown]
